FAERS Safety Report 8571225-9 (Version None)
Quarter: 2012Q3

REPORT INFORMATION
  Report Type: 
  Country: None (occurrence: None)
  Receive Date: 20120730
  Receipt Date: 20120730
  Transmission Date: 20120928
  Serious: Yes (Other)
  Sender: FDA-Public Use
  Company Number: None

PATIENT
  Age: 71 Year
  Sex: Male
  Weight: 130.9 kg

DRUGS (2)
  1. PIOGLITAZONE [Suspect]
     Indication: DIABETES MELLITUS
     Dosage: 45 MG, EVERY DAY, PO
     Route: 048
     Dates: start: 20120304, end: 20120614
  2. AMLODIPINE [Suspect]
     Dosage: 10 ML, EVERY DAY, PO
     Route: 048
     Dates: start: 20101209

REACTIONS (1)
  - CARDIAC FAILURE [None]
